FAERS Safety Report 18932651 (Version 4)
Quarter: 2021Q1

REPORT INFORMATION
  Report Type: Report from Study
  Country: US (occurrence: US)
  Receive Date: 20210224
  Receipt Date: 20210331
  Transmission Date: 20210420
  Serious: Yes (Hospitalization, Other)
  Sender: FDA-Public Use
  Company Number: US-ROCHE-2770075

PATIENT
  Age: 62 Year
  Sex: Male
  Weight: 86 kg

DRUGS (5)
  1. ATEZOLIZUMAB. [Suspect]
     Active Substance: ATEZOLIZUMAB
     Indication: ACUTE MYELOID LEUKAEMIA
     Route: 042
     Dates: start: 20210107, end: 20210218
  2. GILTERITINIB [Suspect]
     Active Substance: GILTERITINIB
     Dosage: ON 03/MAR/2021, RECEIVED MOST RECENT DOSE.
     Route: 048
     Dates: start: 202102
  3. AZACITIDINE. [Concomitant]
     Active Substance: AZACITIDINE
  4. LISINOPRIL. [Concomitant]
     Active Substance: LISINOPRIL
  5. GILTERITINIB [Suspect]
     Active Substance: GILTERITINIB
     Indication: ACUTE MYELOID LEUKAEMIA
     Route: 048
     Dates: start: 20210107, end: 20210218

REACTIONS (5)
  - Pyrexia [Not Recovered/Not Resolved]
  - Hypotension [Not Recovered/Not Resolved]
  - Laryngeal oedema [Not Recovered/Not Resolved]
  - Adrenal insufficiency [Recovered/Resolved]
  - Febrile neutropenia [Not Recovered/Not Resolved]

NARRATIVE: CASE EVENT DATE: 20210209
